FAERS Safety Report 4606918-9 (Version None)
Quarter: 2005Q1

REPORT INFORMATION
  Report Type: 
  Country: None (occurrence: None)
  Receive Date: 20050309
  Receipt Date: 20050215
  Transmission Date: 20050727
  Serious: Yes (Disabling)
  Sender: FDA-Public Use
  Company Number: USA040361555

PATIENT
  Age: 58 Year
  Sex: Male
  Weight: 94 kg

DRUGS (6)
  1. CIALIS [Suspect]
     Dosage: 20 MG
     Dates: start: 20040212, end: 20040212
  2. GLUCOPHAGE [Concomitant]
  3. SINGULAIR [Concomitant]
  4. PREVACID (LASOPRAZOLE) [Concomitant]
  5. AVANDAMET [Concomitant]
  6. ASPIRIN [Concomitant]

REACTIONS (10)
  - DEAFNESS UNILATERAL [None]
  - DIZZINESS [None]
  - GLUCOSE URINE PRESENT [None]
  - HYPERHIDROSIS [None]
  - LABYRINTHITIS [None]
  - LARYNGITIS [None]
  - NAUSEA [None]
  - OPTICOKINETIC NYSTAGMUS TESTS ABNORMAL [None]
  - TINNITUS [None]
  - VERTIGO [None]
